FAERS Safety Report 4927729-0 (Version None)
Quarter: 2006Q1

REPORT INFORMATION
  Report Type: 
  Country: None (occurrence: None)
  Receive Date: 20060228
  Receipt Date: 20060217
  Transmission Date: 20060701
  Serious: Yes (Hospitalization)
  Sender: FDA-Public Use
  Company Number: US-JNJFOC-20060204984

PATIENT
  Age: 42 Year
  Sex: Female

DRUGS (5)
  1. DURAGESIC-100 [Suspect]
     Route: 062
     Dates: start: 20060201, end: 20060215
  2. YASMIN [Concomitant]
  3. YASMIN [Concomitant]
  4. PREDNISONE [Concomitant]
  5. ATARAX [Concomitant]

REACTIONS (4)
  - APPLICATION SITE URTICARIA [None]
  - PHARYNGEAL OEDEMA [None]
  - PRURITUS [None]
  - RESPIRATORY FAILURE [None]
